FAERS Safety Report 6220385-3 (Version None)
Quarter: 2009Q2

REPORT INFORMATION
  Report Type: 
  Country: None (occurrence: None)
  Receive Date: 20090610
  Receipt Date: 20090602
  Transmission Date: 20091009
  Serious: Yes (Life-Threatening, Hospitalization)
  Sender: FDA-Public Use
  Company Number: JP-BRISTOL-MYERS SQUIBB COMPANY-14618995

PATIENT
  Age: 73 Year
  Sex: Female

DRUGS (6)
  1. SPRYCEL [Suspect]
     Indication: CHRONIC MYELOID LEUKAEMIA
     Dosage: FROM 16MAR09-26MAR09; 140 MG/DAY RECENTLY TAKEN ON 27MAR09-27MAR09(70MG/D)
     Route: 048
     Dates: start: 20090316, end: 20090327
  2. VINCRISTINE SULFATE [Suspect]
     Indication: CHRONIC MYELOID LEUKAEMIA
     Route: 065
     Dates: start: 20090309, end: 20090309
  3. PREDNISOLONE [Suspect]
     Indication: CHRONIC MYELOID LEUKAEMIA
     Route: 065
     Dates: start: 20090309, end: 20090317
  4. CEFEPIME [Concomitant]
     Dosage: CEFEPIME DIHYDROCHLORIDE HYDRATE
     Dates: start: 20090322, end: 20090408
  5. IMATINIB MESILATE [Concomitant]
     Dates: start: 20081105, end: 20090315
  6. OMEPRAZOLE [Concomitant]
     Dosage: OMEPRAZOLE SODIUM
     Route: 042
     Dates: start: 20090322, end: 20090325

REACTIONS (1)
  - GASTROINTESTINAL HAEMORRHAGE [None]
